FAERS Safety Report 11363289 (Version 1)
Quarter: 2015Q3

REPORT INFORMATION
  Report Type: Spontaneous
  Country: DE (occurrence: None)
  Receive Date: 20150807
  Receipt Date: 20150807
  Transmission Date: 20151125
  Serious: Yes (Other)
  Sender: FDA-Public Use
  Company Number: DEP_03302_2015

PATIENT
  Age: 66 Year
  Sex: Female

DRUGS (4)
  1. VOCADO HCT [Concomitant]
     Active Substance: AMLODIPINE BESYLATE\HYDROCHLOROTHIAZIDE\OLMESARTAN MEDOXOMIL
  2. DRUGS FOR OBSTRUCTIVE AIRWAY DISEASES [Concomitant]
  3. NOVAMINSULFON [Concomitant]
     Active Substance: METAMIZOLE
  4. PALEXIA [Suspect]
     Active Substance: TAPENTADOL HYDROCHLORIDE
     Indication: POST-TRAUMATIC PAIN
     Route: 048
     Dates: start: 20150724, end: 20150726

REACTIONS (1)
  - Urinary retention [None]

NARRATIVE: CASE EVENT DATE: 20150724
